FAERS Safety Report 4371168-0 (Version None)
Quarter: 2004Q2

REPORT INFORMATION
  Report Type: 
  Country: None (occurrence: None)
  Receive Date: 20040604
  Receipt Date: 20040226
  Transmission Date: 20050107
  Serious: Yes (Death)
  Sender: FDA-Public Use
  Company Number: JP-ROCHE-359982

PATIENT
  Age: 9 Year
  Sex: Male
  Weight: 20 kg

DRUGS (11)
  1. TAMIFLU [Suspect]
     Route: 048
     Dates: start: 20040216, end: 20040220
  2. GLUCOSE [Concomitant]
     Indication: NUTRITIONAL SUPPORT
     Route: 041
     Dates: start: 20040216, end: 20040221
  3. UNKNOWN DRUG [Concomitant]
     Dosage: DRUG NAME STATED AS CONCLYTE-NA.
     Route: 041
     Dates: start: 20040216, end: 20040218
  4. MEYLON [Concomitant]
     Indication: ACIDOSIS
     Route: 041
     Dates: start: 20040219, end: 20040221
  5. GASTER [Concomitant]
     Indication: PROPHYLAXIS
     Route: 041
     Dates: start: 20040219, end: 20040219
  6. EPOGIN [Concomitant]
     Indication: ANAEMIA
     Route: 058
     Dates: start: 20040219, end: 20040219
  7. MUCODYNE [Concomitant]
     Indication: UPPER RESPIRATORY TRACT INFECTION
     Route: 048
     Dates: start: 20040216, end: 20040218
  8. FLAGYL [Concomitant]
     Indication: FATTY ACID DEFICIENCY
     Route: 048
     Dates: end: 20040218
  9. LAC B-R [Concomitant]
     Indication: ENTEROCOLITIS
     Route: 048
     Dates: end: 20040218
  10. ORYZATYM [Concomitant]
     Indication: ENTEROCOLITIS
     Route: 048
     Dates: end: 20040218
  11. SODIUM BICARBONATE [Concomitant]
     Indication: ACIDOSIS
     Route: 048
     Dates: end: 20040218

REACTIONS (7)
  - ACIDOSIS [None]
  - CARDIAC ARREST [None]
  - CONDITION AGGRAVATED [None]
  - DEPRESSED LEVEL OF CONSCIOUSNESS [None]
  - PANCREATITIS ACUTE [None]
  - RESPIRATORY ARREST [None]
  - TACHYPNOEA [None]
